FAERS Safety Report 24592885 (Version 2)
Quarter: 2024Q4

REPORT INFORMATION
  Report Type: Report from Study
  Country: ES (occurrence: ES)
  Receive Date: 20241108
  Receipt Date: 20241112
  Transmission Date: 20250115
  Serious: Yes (Death)
  Sender: ABBVIE
  Company Number: ES-ABBVIE-5995312

PATIENT
  Age: 71 Year
  Sex: Female

DRUGS (1)
  1. CARBIDOPA\LEVODOPA [Suspect]
     Active Substance: CARBIDOPA\LEVODOPA
     Indication: Product used for unknown indication
     Dosage: 240 MG/ML + 12 MG/ML SOLUCION PARA PERFUSION
     Route: 058
     Dates: start: 20240221, end: 20241105

REACTIONS (1)
  - Cerebral haemorrhage [Fatal]

NARRATIVE: CASE EVENT DATE: 20240101
